FAERS Safety Report 6914031-0 (Version None)
Quarter: 2010Q3

REPORT INFORMATION
  Report Type: 
  Country: None (occurrence: None)
  Receive Date: 20100806
  Receipt Date: 20100806
  Transmission Date: 20110219
  Serious: No
  Sender: FDA-Public Use
  Company Number: None

PATIENT
  Sex: Female
  Weight: 70.3075 kg

DRUGS (2)
  1. VALACYCLOVIR HYDROCHLORIDE [Suspect]
     Indication: HERPES SIMPLEX
     Dosage: 500MG DAILY PO
     Route: 048
     Dates: start: 20100101, end: 20100701
  2. VALACYCLOVIR HYDROCHLORIDE [Suspect]

REACTIONS (1)
  - NO THERAPEUTIC RESPONSE [None]
